FAERS Safety Report 4901379-4 (Version None)
Quarter: 2006Q1

REPORT INFORMATION
  Report Type: 
  Country: None (occurrence: None)
  Receive Date: 20060206
  Receipt Date: 20060123
  Transmission Date: 20060701
  Serious: Yes (Hospitalization)
  Sender: FDA-Public Use
  Company Number: FRWYE323823JAN06

PATIENT
  Age: 54 Year
  Sex: Female

DRUGS (2)
  1. ENBREL [Suspect]
     Indication: PSORIATIC ARTHROPATHY
     Dosage: UNKNOWN
     Route: 058
     Dates: start: 20040429, end: 20050715
  2. HYDROCORTISONE [Suspect]
     Dosage: 10 MG TOTAL DAILY
     Route: 048

REACTIONS (3)
  - CLEAR CELL CARCINOMA OF THE KIDNEY [None]
  - METASTASES TO ADRENALS [None]
  - METASTASIS [None]
